FAERS Safety Report 20760490 (Version 1)
Quarter: 2022Q2

REPORT INFORMATION
  Report Type: Spontaneous
  Country: US (occurrence: US)
  Receive Date: 20220428
  Receipt Date: 20220428
  Transmission Date: 20220721
  Serious: No
  Sender: FDA-Public Use
  Company Number: US-ENDO PHARMACEUTICALS INC-2022-000683

PATIENT
  Sex: Female
  Weight: 60.317 kg

DRUGS (4)
  1. QWO [Suspect]
     Active Substance: COLLAGENASE CLOSTRIDIUM HISTOLYTICUM-AAES
     Indication: Cellulite
     Dosage: UNK, UNKNOWN (TREATMENT ONE) (ON BUTTOCKS AND THIGHS)
     Route: 065
     Dates: start: 2021
  2. QWO [Suspect]
     Active Substance: COLLAGENASE CLOSTRIDIUM HISTOLYTICUM-AAES
     Dosage: UNK, UNKNOWN (TREATMENT TWO) (ON BUTTOCKS AND THIGHS)
     Route: 065
     Dates: start: 202107
  3. QWO [Suspect]
     Active Substance: COLLAGENASE CLOSTRIDIUM HISTOLYTICUM-AAES
     Dosage: UNK, UNKNOWN (TREATMENT THREE) (ON BUTTOCKS AND THIGHS)
     Route: 065
     Dates: start: 202108, end: 2021
  4. LEVOTHYROXINE [Concomitant]
     Active Substance: LEVOTHYROXINE
     Indication: Product used for unknown indication
     Dosage: 125 ?G, DAILY (EVERY MORNING)
     Route: 048

REACTIONS (4)
  - Skin indentation [Not Recovered/Not Resolved]
  - Swelling [Recovered/Resolved]
  - Injection site bruising [Not Recovered/Not Resolved]
  - Off label use [Recovered/Resolved]

NARRATIVE: CASE EVENT DATE: 20210101
